FAERS Safety Report 20846549 (Version 1)
Quarter: 2022Q2

REPORT INFORMATION
  Report Type: Report from Study
  Country: US (occurrence: US)
  Receive Date: 20220518
  Receipt Date: 20220518
  Transmission Date: 20220720
  Serious: Yes (Other)
  Sender: FDA-Public Use
  Company Number: US-CELGENE-USA-20220204760

PATIENT
  Age: 50 Year
  Sex: Female
  Weight: 77.02 kg

DRUGS (3)
  1. POMALYST [Suspect]
     Active Substance: POMALIDOMIDE
     Indication: Plasma cell myeloma in remission
     Dosage: 2 MILLIGRAM
     Route: 048
     Dates: start: 202111
  2. POMALYST [Suspect]
     Active Substance: POMALIDOMIDE
     Dosage: 1 MILLIGRAM
     Route: 048
     Dates: start: 20211202
  3. POMALYST [Suspect]
     Active Substance: POMALIDOMIDE
     Dosage: 1 MG 14 DAYS ON AND 14 DAYS OFF
     Route: 048
     Dates: start: 20211202

REACTIONS (3)
  - White blood cell count decreased [Unknown]
  - Swelling face [Unknown]
  - Peripheral swelling [Unknown]
